FAERS Safety Report 22243733 (Version 1)
Quarter: 2023Q2

REPORT INFORMATION
  Report Type: Report from Study
  Country: US (occurrence: US)
  Receive Date: 20230424
  Receipt Date: 20230424
  Transmission Date: 20230722
  Serious: Yes (Hospitalization, Other)
  Sender: FDA-Public Use
  Company Number: US-BEH-2023157062

PATIENT
  Age: 20 Year
  Sex: Female

DRUGS (3)
  1. HAEMATE P [Suspect]
     Active Substance: ANTIHEMOPHILIC FACTOR HUMAN
     Indication: Von Willebrand^s disease
     Dosage: UNK 500-1200 PRODUCT STRENGTH
     Route: 065
  2. HAEMATE P [Suspect]
     Active Substance: ANTIHEMOPHILIC FACTOR HUMAN
     Dosage: 40 MILLIGRAM, SINGLE
     Route: 058
     Dates: start: 20230325, end: 20230325
  3. HAEMATE P [Suspect]
     Active Substance: ANTIHEMOPHILIC FACTOR HUMAN
     Dosage: 40 MILLIGRAM, SINGLE
     Route: 058
     Dates: start: 20230328, end: 20230328

REACTIONS (1)
  - Heavy menstrual bleeding [Not Recovered/Not Resolved]

NARRATIVE: CASE EVENT DATE: 20230325
